FAERS Safety Report 19125204 (Version 1)
Quarter: 2021Q2

REPORT INFORMATION
  Report Type: Spontaneous
  Country: US (occurrence: US)
  Receive Date: 20210413
  Receipt Date: 20210413
  Transmission Date: 20210717
  Serious: Yes (Other)
  Sender: FDA-Public Use
  Company Number: US-SUN PHARMACEUTICAL INDUSTRIES LTD-2021R1-290307

PATIENT
  Sex: Female
  Weight: 68.03 kg

DRUGS (3)
  1. BACTRIM [Suspect]
     Active Substance: SULFAMETHOXAZOLE\TRIMETHOPRIM
     Indication: PRODUCT USED FOR UNKNOWN INDICATION
     Dosage: UNK
     Route: 065
  2. FUROSEMIDE. [Suspect]
     Active Substance: FUROSEMIDE
     Indication: PRODUCT USED FOR UNKNOWN INDICATION
     Dosage: UNK
     Route: 065
  3. TERIFLUNOMIDE. [Interacting]
     Active Substance: TERIFLUNOMIDE
     Indication: MULTIPLE SCLEROSIS
     Dosage: 14 MILLIGRAM, OD
     Route: 048
     Dates: start: 20170709

REACTIONS (11)
  - Urinary incontinence [Not Recovered/Not Resolved]
  - Crying [Unknown]
  - Multiple sclerosis [Recovered/Resolved]
  - Arthritis [Unknown]
  - Drug interaction [Unknown]
  - Memory impairment [Unknown]
  - Muscle spasms [Unknown]
  - Pain [Unknown]
  - Family stress [Unknown]
  - Condition aggravated [Unknown]
  - Mental disorder [Unknown]

NARRATIVE: CASE EVENT DATE: 2017
